FAERS Safety Report 24767969 (Version 1)
Quarter: 2024Q4

REPORT INFORMATION
  Report Type: Spontaneous
  Country: FR (occurrence: FR)
  Receive Date: 20241223
  Receipt Date: 20241223
  Transmission Date: 20250114
  Serious: Yes (Hospitalization)
  Sender: ELI LILLY AND COMPANY
  Company Number: None

PATIENT
  Age: 64 Year
  Sex: Male

DRUGS (1)
  1. ALIMTA [Suspect]
     Active Substance: PEMETREXED DISODIUM
     Indication: Bronchial carcinoma
     Dosage: UNK, CYCLICAL
     Route: 042
     Dates: start: 20241004, end: 20241004

REACTIONS (5)
  - Eosinophilia [Not Recovered/Not Resolved]
  - Hepatic cytolysis [Recovered/Resolved]
  - Febrile bone marrow aplasia [Recovering/Resolving]
  - Dermatitis exfoliative generalised [Recovering/Resolving]
  - Acute kidney injury [Recovered/Resolved]

NARRATIVE: CASE EVENT DATE: 20241011
